FAERS Safety Report 7690284-9 (Version None)
Quarter: 2011Q3

REPORT INFORMATION
  Report Type: 
  Country: None (occurrence: None)
  Receive Date: 20110818
  Receipt Date: 20110815
  Transmission Date: 20111222
  Serious: Yes (Hospitalization, Other)
  Sender: FDA-Public Use
  Company Number: US-PFIZER INC-2011188134

PATIENT
  Sex: Female
  Weight: 95.238 kg

DRUGS (4)
  1. SINGULAIR [Concomitant]
  2. SOLU-MEDROL [Suspect]
     Indication: HEREDITARY ANGIOEDEMA
     Dosage: UNK
     Route: 042
     Dates: start: 20110707
  3. DANAZOL [Concomitant]
  4. ATIVAN [Suspect]
     Indication: HEREDITARY ANGIOEDEMA
     Dosage: UNK
     Route: 042
     Dates: start: 20110707

REACTIONS (2)
  - BLOOD PRESSURE INCREASED [None]
  - GRAND MAL CONVULSION [None]
